FAERS Safety Report 5788752-X (Version None)
Quarter: 2008Q2

REPORT INFORMATION
  Report Type: 
  Country: None (occurrence: None)
  Receive Date: 20080623
  Receipt Date: 20080611
  Transmission Date: 20081010
  Serious: Yes (Hospitalization)
  Sender: FDA-Public Use
  Company Number: 198857

PATIENT
  Age: 49 Year
  Sex: Male
  Weight: 74.8435 kg

DRUGS (4)
  1. AVONEX [Suspect]
     Indication: MULTIPLE SCLEROSIS
     Dosage: 30 UG; QW; IM
     Route: 030
     Dates: start: 20010501
  2. ZANAFLEX [Concomitant]
  3. PROVIGIL [Concomitant]
  4. DITROPAN XL [Concomitant]

REACTIONS (16)
  - APHASIA [None]
  - BLOOD URINE PRESENT [None]
  - BRONCHITIS [None]
  - COGNITIVE DISORDER [None]
  - GAIT DISTURBANCE [None]
  - HAEMATOCHEZIA [None]
  - INFLUENZA LIKE ILLNESS [None]
  - INJECTION SITE PAIN [None]
  - LOCALISED INTRAABDOMINAL FLUID COLLECTION [None]
  - NEPHROLITHIASIS [None]
  - NIGHT SWEATS [None]
  - OPHTHALMOPLEGIA [None]
  - OPTIC NEURITIS [None]
  - POLYP [None]
  - SCIATICA [None]
  - SMALL INTESTINAL OBSTRUCTION [None]
